FAERS Safety Report 10407130 (Version 1)
Quarter: 2014Q3

REPORT INFORMATION
  Report Type: Spontaneous
  Country: US (occurrence: None)
  Receive Date: 20140822
  Receipt Date: 20140822
  Transmission Date: 20150326
  Serious: Yes (Disabling)
  Sender: FDA-Public Use
  Company Number: None

PATIENT
  Age: 55 Year
  Sex: Female
  Weight: 104.33 kg

DRUGS (1)
  1. XARELTO [Suspect]
     Active Substance: RIVAROXABAN
     Indication: THROMBOSIS
     Dosage: 1 PILL  AT BEDTIME  TAKEN BY MOUTH
     Route: 048

REACTIONS (4)
  - Mobility decreased [None]
  - Quality of life decreased [None]
  - Therapy cessation [None]
  - Dizziness [None]

NARRATIVE: CASE EVENT DATE: 20140703
